FAERS Safety Report 16623222 (Version 2)
Quarter: 2020Q1

REPORT INFORMATION
  Report Type: Spontaneous
  Country: CA (occurrence: CA)
  Receive Date: 20190724
  Receipt Date: 20200211
  Transmission Date: 20200409
  Serious: Yes (Other)
  Sender: FDA-Public Use
  Company Number: CA-AUROBINDO-AUR-APL-2019-041476

PATIENT
  Age: 78 Year
  Sex: Female

DRUGS (7)
  1. ESOMEPRAZOLE. [Concomitant]
     Active Substance: ESOMEPRAZOLE MAGNESIUM
     Indication: OESOPHAGEAL DISORDER
     Dosage: 1 DOSAGE FORM, ONCE A DAY
     Route: 065
  2. XOLAIR [Suspect]
     Active Substance: OMALIZUMAB
     Indication: CHRONIC SPONTANEOUS URTICARIA
     Dosage: 300 MILLIGRAM
     Route: 058
  3. BLEXTEN [Concomitant]
     Active Substance: BILASTINE
     Indication: URTICARIA
     Dosage: 2 DOSAGE FORM, ONCE A DAY
     Route: 065
  4. SYNTHROID [Concomitant]
     Active Substance: LEVOTHYROXINE SODIUM
     Indication: THYROID DISORDER
     Dosage: 6 DOSAGE FORM
     Route: 065
  5. ZOLEDRONIC ACID [Suspect]
     Active Substance: ZOLEDRONIC ACID
     Indication: BONE DENSITY ABNORMAL
     Dosage: 1 DOSAGE FORM
     Route: 042
  6. PREDNISONE. [Concomitant]
     Active Substance: PREDNISONE
     Indication: URTICARIA
     Dosage: UNK
     Route: 065
  7. MONTELUKAST [Suspect]
     Active Substance: MONTELUKAST SODIUM
     Indication: URTICARIA
     Dosage: 1 DOSAGE FORM, ONCE A DAY
     Route: 065

REACTIONS (5)
  - Mouth swelling [Recovering/Resolving]
  - Urticaria [Recovering/Resolving]
  - Pain [Recovering/Resolving]
  - Hypertension [Recovering/Resolving]
  - Swollen tongue [Recovering/Resolving]
